FAERS Safety Report 21608056 (Version 2)
Quarter: 2022Q4

REPORT INFORMATION
  Report Type: Report from Study
  Country: DE (occurrence: DE)
  Receive Date: 20221117
  Receipt Date: 20221229
  Transmission Date: 20230113
  Serious: Yes (Other)
  Sender: FDA-Public Use
  Company Number: DE-LEO Pharma-344987

PATIENT
  Age: 64 Year
  Sex: Female

DRUGS (6)
  1. BRODALUMAB [Suspect]
     Active Substance: BRODALUMAB
     Indication: Psoriasis
     Dosage: BI-WEEKLY
     Route: 058
     Dates: start: 20220713, end: 20221019
  2. IVABRADINE [Concomitant]
     Active Substance: IVABRADINE
     Indication: Complication associated with device
     Dosage: SINCE 2015, 0-0-1
     Route: 048
     Dates: start: 2015
  3. EZETIMIBE [Concomitant]
     Active Substance: EZETIMIBE
     Indication: Hypercholesterolaemia
     Dosage: SINCE 2015, 0-0-1
     Route: 048
     Dates: start: 2015
  4. ASPIRIN [Concomitant]
     Active Substance: ASPIRIN
     Indication: Angina pectoris
     Dosage: SINCE 2015,  1-0-0
     Route: 048
     Dates: start: 2015
  5. ASPIRIN [Concomitant]
     Active Substance: ASPIRIN
     Indication: Complication associated with device
  6. RAMIPRIL [Concomitant]
     Active Substance: RAMIPRIL
     Indication: Hypertension
     Dosage: SINCE 2015,1-0-1
     Route: 048
     Dates: start: 2015

REACTIONS (4)
  - Eczema eyelids [Recovered/Resolved]
  - Eczema [Recovering/Resolving]
  - Alopecia [Not Recovered/Not Resolved]
  - Paradoxical drug reaction [Not Recovered/Not Resolved]

NARRATIVE: CASE EVENT DATE: 20220718
